FAERS Safety Report 16962108 (Version 1)
Quarter: 2019Q4

REPORT INFORMATION
  Report Type: Spontaneous
  Country: CN (occurrence: CN)
  Receive Date: 20191025
  Receipt Date: 20191025
  Transmission Date: 20200122
  Serious: Yes (Other)
  Sender: FDA-Public Use
  Company Number: CN-BRISTOL-MYERS SQUIBB COMPANY-BMS-2019-100334

PATIENT
  Age: 65 Year
  Sex: Male
  Weight: 55 kg

DRUGS (4)
  1. OPDIVO [Suspect]
     Active Substance: NIVOLUMAB
     Indication: SMALL INTESTINE CARCINOMA
     Dosage: 180 MILLIGRAM
     Route: 041
     Dates: start: 20190807, end: 20190905
  2. STIVARGA [Suspect]
     Active Substance: REGORAFENIB
     Indication: PRODUCT USED FOR UNKNOWN INDICATION
     Dosage: 80 MILLIGRAM, QD
     Route: 048
     Dates: start: 20190904, end: 20190925
  3. OPDIVO [Suspect]
     Active Substance: NIVOLUMAB
     Indication: PRODUCT USED FOR UNKNOWN INDICATION
     Dosage: 160 MILLIGRAM
     Route: 041
     Dates: start: 20190919
  4. STIVARGA [Suspect]
     Active Substance: REGORAFENIB
     Indication: SMALL INTESTINE CARCINOMA
     Dosage: 80 MILLIGRAM, QD
     Route: 048
     Dates: start: 20190807, end: 20190828

REACTIONS (4)
  - Metastases to liver [Unknown]
  - Hepatic function abnormal [Unknown]
  - Blood corticotrophin increased [Unknown]
  - Intentional product use issue [Unknown]

NARRATIVE: CASE EVENT DATE: 20190930
